FAERS Safety Report 21802614 (Version 2)
Quarter: 2023Q1

REPORT INFORMATION
  Report Type: Spontaneous
  Country: FR (occurrence: FR)
  Receive Date: 20221231
  Receipt Date: 20230126
  Transmission Date: 20230418
  Serious: Yes (Hospitalization)
  Sender: FDA-Public Use
  Company Number: None

PATIENT
  Age: 73 Year
  Sex: Female
  Weight: 72.6 kg

DRUGS (3)
  1. LETROZOLE [Suspect]
     Active Substance: LETROZOLE
     Indication: Breast cancer
     Dosage: THERAPY END DATE : NASK, FREQUENCY TIME : 1 DAY, UNIT DOSE : 2.5 MG
     Route: 065
     Dates: start: 20220303
  2. KISQALI [Suspect]
     Active Substance: RIBOCICLIB
     Indication: Breast cancer
     Dosage: 21D/28D, STRENGTH: 200 MG, UNIT DOSE : 600 MG, DURATION : 239 DAYS
     Dates: start: 20220314, end: 20221108
  3. ELIQUIS [Suspect]
     Active Substance: APIXABAN
     Indication: Product used for unknown indication
     Dosage: 5 MILLIGRAM DAILY; ELIQUIS 2.5 MG FILM-COATED TABLETS, 2.5MG X 2/DAY, DURATION : 10 MONTHS
     Route: 065
     Dates: start: 202202, end: 20221222

REACTIONS (1)
  - Tubulointerstitial nephritis [Not Recovered/Not Resolved]

NARRATIVE: CASE EVENT DATE: 20221104
